FAERS Safety Report 21855457 (Version 1)
Quarter: 2023Q1

REPORT INFORMATION
  Report Type: Spontaneous
  Country: FR (occurrence: FR)
  Receive Date: 20230112
  Receipt Date: 20230112
  Transmission Date: 20230418
  Serious: Yes (Life-Threatening)
  Sender: FDA-Public Use
  Company Number: None

PATIENT
  Age: 57 Year
  Sex: Male

DRUGS (3)
  1. CEFAZOLIN [Suspect]
     Active Substance: CEFAZOLIN
     Indication: General anaesthesia
     Dosage: 1 DOSAGE FORM 1 TOTAL
     Route: 042
     Dates: start: 20201016, end: 20201016
  2. ROCURONIUM [Suspect]
     Active Substance: ROCURONIUM BROMIDE
     Indication: General anaesthesia
     Dosage: 1 DOSAGE FORM  1 TOTAL
     Route: 042
     Dates: start: 20201016, end: 20201016
  3. SODIUM CARBONATE\THIOPENTAL [Suspect]
     Active Substance: SODIUM CARBONATE\THIOPENTAL
     Indication: General anaesthesia
     Dosage: 1 DOSAGE FORM 1 TOTAL
     Route: 042
     Dates: start: 20201016, end: 20201016

REACTIONS (2)
  - Anaphylactic shock [Recovered/Resolved]
  - Allergy test negative [Recovered/Resolved]

NARRATIVE: CASE EVENT DATE: 20201016
